FAERS Safety Report 7670757-5 (Version None)
Quarter: 2011Q3

REPORT INFORMATION
  Report Type: 
  Country: None (occurrence: None)
  Receive Date: 20110803
  Receipt Date: 20110719
  Transmission Date: 20111222
  Serious: Yes (Other)
  Sender: FDA-Public Use
  Company Number: 2011MA009067

PATIENT
  Age: 69 Year
  Sex: Male

DRUGS (8)
  1. OMEPRAZOLE [Concomitant]
  2. FUROSEMIDE [Concomitant]
  3. ATENOLOL [Concomitant]
  4. ATORVASTATIN [Concomitant]
  5. TRANDOLAPRIL [Concomitant]
  6. SPIRONOLACTONE [Suspect]
     Dosage: 25 MG
     Dates: start: 20000701, end: 20021201
  7. SULINDAC [Concomitant]
  8. LERCANIDIPINE [Concomitant]

REACTIONS (4)
  - NEPHROTIC SYNDROME [None]
  - GLOMERULONEPHRITIS MEMBRANOUS [None]
  - NEPHROPATHY [None]
  - NIPPLE PAIN [None]
